FAERS Safety Report 6856015-7 (Version None)
Quarter: 2010Q3

REPORT INFORMATION
  Report Type: 
  Country: None (occurrence: None)
  Receive Date: 20100716
  Receipt Date: 20100716
  Transmission Date: 20110219
  Serious: Yes (Disabling)
  Sender: FDA-Public Use
  Company Number: None

PATIENT
  Sex: Female
  Weight: 53.0709 kg

DRUGS (1)
  1. ACTONEL [Suspect]
     Indication: OSTEOPOROSIS
     Dosage: 150 MG 1 PER MONTH
     Dates: start: 20090601, end: 20100601

REACTIONS (3)
  - ARTHRALGIA [None]
  - ORTHOSIS USER [None]
  - WALKING AID USER [None]
